FAERS Safety Report 19460012 (Version 1)
Quarter: 2021Q2

REPORT INFORMATION
  Report Type: Spontaneous
  Country: US (occurrence: US)
  Receive Date: 20210625
  Receipt Date: 20210625
  Transmission Date: 20210717
  Serious: Yes (Other)
  Sender: FDA-Public Use
  Company Number: US-AUROBINDO-AUR-APL-2012-04918

PATIENT
  Age: 18 Year
  Sex: Male

DRUGS (3)
  1. DIDANOSINE. [Suspect]
     Active Substance: DIDANOSINE
     Indication: ANTIRETROVIRAL THERAPY
     Dosage: UNK
     Route: 065
  2. ZIDOVUDINE. [Suspect]
     Active Substance: ZIDOVUDINE
     Indication: ANTIRETROVIRAL THERAPY
     Dosage: UNK
     Route: 065
  3. LOPINAVIR/RITONAVIR [Suspect]
     Active Substance: LOPINAVIR\RITONAVIR
     Indication: ANTIRETROVIRAL THERAPY
     Dosage: UNK
     Route: 065

REACTIONS (16)
  - Acute kidney injury [Unknown]
  - Herpes zoster [Unknown]
  - Nephropathy [Unknown]
  - Pharyngitis streptococcal [Unknown]
  - Renal disorder [Unknown]
  - Haematuria [Not Recovered/Not Resolved]
  - Immune reconstitution inflammatory syndrome [Unknown]
  - Anaemia [Unknown]
  - Proteinuria [Unknown]
  - Back pain [Unknown]
  - CD4 lymphocytes decreased [Unknown]
  - Blood creatinine increased [Recovered/Resolved]
  - Glomerulonephritis [Unknown]
  - Glomerulonephropathy [Unknown]
  - Haemoglobin decreased [Unknown]
  - Streptococcus test positive [Not Recovered/Not Resolved]
